FAERS Safety Report 8339410 (Version 2)
Quarter: 2015Q1

REPORT INFORMATION
  Report Type: Report from Study
  Country: US (occurrence: US)
  Receive Date: 20120117
  Receipt Date: 20150211
  Transmission Date: 20150721
  Serious: Yes (Death)
  Sender: FDA-Public Use
  Company Number: US-ROCHE-1028946

PATIENT
  Sex: Female
  Weight: 108.7 kg

DRUGS (11)
  1. BENADRYL [Concomitant]
     Active Substance: DIPHENHYDRAMINE HYDROCHLORIDE
     Dosage: AS NEEDED.
     Route: 065
  2. ADVAIR HFA [Concomitant]
     Active Substance: FLUTICASONE PROPIONATE\SALMETEROL XINAFOATE
     Dosage: 500/50 MCG.
     Route: 048
  3. EPIPEN [Concomitant]
     Active Substance: EPINEPHRINE
  4. XOLAIR [Suspect]
     Active Substance: OMALIZUMAB
     Dosage: MG RECEIVED: 750.?DISPENSED IN 150 MG VIAL.
     Route: 058
  5. PAROXETINE [Concomitant]
     Active Substance: PAROXETINE\PAROXETINE HYDROCHLORIDE
     Route: 048
  6. VENTOLIN HFA [Concomitant]
     Active Substance: ALBUTEROL SULFATE
  7. XOLAIR [Suspect]
     Active Substance: OMALIZUMAB
     Dosage: DISPENSED IN 150 MG VIAL.
     Route: 058
     Dates: start: 20110324
  8. HYDROCHLOROTHIAZIDE. [Concomitant]
     Active Substance: HYDROCHLOROTHIAZIDE
     Route: 048
  9. XOLAIR [Suspect]
     Active Substance: OMALIZUMAB
     Indication: ASTHMA
     Dosage: MG RECEIVED: 600 MG.?DISPENSED IN 150 MG VIAL.
     Route: 058
     Dates: start: 20100210
  10. CLONAZEPAM. [Suspect]
     Active Substance: CLONAZEPAM
     Indication: PRODUCT USED FOR UNKNOWN INDICATION
     Dosage: AS DIRECTED
     Route: 065
  11. PROAIR HFA [Concomitant]
     Active Substance: ALBUTEROL SULFATE
     Dosage: INHALE 2 TIMES.
     Route: 048

REACTIONS (7)
  - Paraesthesia [Unknown]
  - Fatigue [Unknown]
  - Drug ineffective [Unknown]
  - Death [Fatal]
  - Blood pressure decreased [Unknown]
  - Flushing [Unknown]
  - Asthma [Unknown]
